FAERS Safety Report 23047465 (Version 1)
Quarter: 2023Q4

REPORT INFORMATION
  Report Type: Spontaneous
  Country: US (occurrence: US)
  Receive Date: 20231010
  Receipt Date: 20231010
  Transmission Date: 20240110
  Serious: Yes (Hospitalization)
  Sender: FDA-Public Use
  Company Number: US-AMGEN-USASP2023176179

PATIENT
  Sex: Female

DRUGS (1)
  1. PROLIA [Suspect]
     Active Substance: DENOSUMAB
     Indication: Osteoporosis
     Dosage: UNK
     Route: 065

REACTIONS (9)
  - Pain [Unknown]
  - Pyrexia [Unknown]
  - Headache [Unknown]
  - Pain in jaw [Unknown]
  - Muscle spasms [Unknown]
  - Gastrointestinal disorder [Unknown]
  - Bladder disorder [Unknown]
  - Memory impairment [Unknown]
  - Depression [Unknown]
